FAERS Safety Report 9190294 (Version 2)
Quarter: 2013Q3

REPORT INFORMATION
  Report Type: Spontaneous
  Country: US (occurrence: US)
  Receive Date: 20130326
  Receipt Date: 20130906
  Transmission Date: 20140515
  Serious: Yes (Hospitalization)
  Sender: FDA-Public Use
  Company Number: US-BAYER-2013-035752

PATIENT
  Age: 34 Year
  Sex: Female
  Weight: 69 kg

DRUGS (2)
  1. OCELLA [Suspect]
  2. IBUPROFEN [Concomitant]

REACTIONS (2)
  - Pelvic venous thrombosis [Recovered/Resolved]
  - Biliary dyskinesia [None]
